FAERS Safety Report 6105619-8 (Version None)
Quarter: 2009Q1

REPORT INFORMATION
  Report Type: 
  Country: None (occurrence: None)
  Receive Date: 20090227
  Receipt Date: 20080716
  Transmission Date: 20090719
  Serious: Yes (Hospitalization, Other)
  Sender: FDA-Public Use
  Company Number: RB-2485-2008

PATIENT
  Sex: Female

DRUGS (3)
  1. SUBUTEX [Suspect]
     Indication: DRUG DEPENDENCE
     Dosage: 4 MG QD TRANSPLACENTAL, 2-4MG PER DAY TRANSPLACENTAL
     Route: 064
     Dates: end: 20080624
  2. SUBUTEX [Suspect]
     Indication: DRUG DEPENDENCE
     Dosage: 4 MG QD TRANSPLACENTAL, 2-4MG PER DAY TRANSPLACENTAL
     Route: 064
     Dates: start: 20070901
  3. PAXIL [Concomitant]

REACTIONS (1)
  - DRUG WITHDRAWAL SYNDROME NEONATAL [None]
